FAERS Safety Report 21923588 (Version 7)
Quarter: 2023Q2

REPORT INFORMATION
  Report Type: Spontaneous
  Country: CA (occurrence: CA)
  Receive Date: 20230130
  Receipt Date: 20230608
  Transmission Date: 20230722
  Serious: Yes (Hospitalization, Other)
  Sender: FDA-Public Use
  Company Number: CA-CELLTRION INC.-2022CA020086

PATIENT

DRUGS (7)
  1. INFLECTRA [Suspect]
     Active Substance: INFLIXIMAB-DYYB
     Indication: Crohn^s disease
     Dosage: 400 MG, WEEK 0,2,6 THEN Q 8 WEEKS  (EVERY 8 WEEKS)
     Route: 042
     Dates: start: 20221209
  2. INFLECTRA [Suspect]
     Active Substance: INFLIXIMAB-DYYB
     Dosage: 400 MG, WEEK 0,2,6 THEN Q 8 WEEKS  (EVERY 8 WEEKS)
     Route: 042
     Dates: start: 20221223
  3. INFLECTRA [Suspect]
     Active Substance: INFLIXIMAB-DYYB
     Dosage: 400 MG Q  8 WEEK (WEEK 0,2,6 THEN Q 8 WEEKS)
     Route: 042
     Dates: start: 20230120
  4. INFLECTRA [Suspect]
     Active Substance: INFLIXIMAB-DYYB
     Dosage: 400 MG Q  8 WEEK (WEEK 0,2,6 THEN Q 8 WEEKS)
     Route: 042
     Dates: start: 20230317
  5. INFLECTRA [Suspect]
     Active Substance: INFLIXIMAB-DYYB
     Dosage: 400 MG, EVERY 8 WEEKS
     Route: 042
     Dates: start: 20230512
  6. ACETAMINOPHEN [Concomitant]
     Active Substance: ACETAMINOPHEN
     Indication: Premedication
     Dosage: 1000 MG
     Dates: start: 20230512, end: 20230512
  7. PREDNISONE [Concomitant]
     Active Substance: PREDNISONE
     Indication: Premedication
     Dosage: 15 MG
     Dates: start: 20230512, end: 20230512

REACTIONS (29)
  - Gastrointestinal necrosis [Unknown]
  - Angina pectoris [Unknown]
  - Haematochezia [Recovered/Resolved]
  - Myocardial infarction [Not Recovered/Not Resolved]
  - Off label use [Unknown]
  - Intentional product use issue [Unknown]
  - Chest pain [Not Recovered/Not Resolved]
  - Arthralgia [Not Recovered/Not Resolved]
  - Headache [Not Recovered/Not Resolved]
  - Fatigue [Not Recovered/Not Resolved]
  - Asthenia [Unknown]
  - Hypoaesthesia [Not Recovered/Not Resolved]
  - Insomnia [Recovered/Resolved]
  - Dyspnoea [Recovering/Resolving]
  - Pain in extremity [Not Recovered/Not Resolved]
  - Grip strength decreased [Not Recovered/Not Resolved]
  - Condition aggravated [Not Recovered/Not Resolved]
  - Somnolence [Unknown]
  - Hyperhidrosis [Not Recovered/Not Resolved]
  - Dizziness [Recovered/Resolved]
  - Fall [Unknown]
  - Anxiety [Recovering/Resolving]
  - Chest pain [Recovering/Resolving]
  - Muscular weakness [Recovering/Resolving]
  - Hot flush [Recovered/Resolved]
  - Flushing [Recovered/Resolved]
  - Dizziness [Recovered/Resolved]
  - Erythema [Recovered/Resolved]
  - Blood pressure decreased [Recovered/Resolved]

NARRATIVE: CASE EVENT DATE: 20221223
